FAERS Safety Report 13307158 (Version 1)
Quarter: 2017Q1

REPORT INFORMATION
  Report Type: Report from Study
  Country: AR (occurrence: AR)
  Receive Date: 20170308
  Receipt Date: 20170308
  Transmission Date: 20170428
  Serious: Yes (Hospitalization)
  Sender: FDA-Public Use
  Company Number: PHHY2017AR025385

PATIENT
  Age: 69 Year
  Sex: Male

DRUGS (1)
  1. ENTRESTO [Suspect]
     Active Substance: SACUBITRIL\VALSARTAN
     Indication: CARDIAC FAILURE CHRONIC
     Dosage: 50 MG, QD
     Route: 065
     Dates: start: 201612

REACTIONS (4)
  - Angina pectoris [Recovering/Resolving]
  - Underdose [Unknown]
  - Inappropriate schedule of drug administration [Unknown]
  - Arterial injury [Recovering/Resolving]

NARRATIVE: CASE EVENT DATE: 201612
